FAERS Safety Report 4678407-7 (Version None)
Quarter: 2005Q2

REPORT INFORMATION
  Report Type: 
  Country: None (occurrence: None)
  Receive Date: 20050527
  Receipt Date: 20050512
  Transmission Date: 20051028
  Serious: No
  Sender: FDA-Public Use
  Company Number: US015262

PATIENT
  Age: 24 Month
  Sex: Female
  Weight: 13.6079 kg

DRUGS (1)
  1. ACTIQ [Suspect]
     Dosage: 800 MG ONCE BUCCAL
     Route: 002
     Dates: start: 20050512, end: 20050512

REACTIONS (1)
  - ACCIDENTAL EXPOSURE [None]
